FAERS Safety Report 6022564-7 (Version None)
Quarter: 2008Q4

REPORT INFORMATION
  Report Type: 
  Country: None (occurrence: None)
  Receive Date: 20081230
  Receipt Date: 20081222
  Transmission Date: 20090506
  Serious: Yes (Other)
  Sender: FDA-Public Use
  Company Number: PHEH2008US11358

PATIENT
  Sex: Male

DRUGS (3)
  1. EXELON [Suspect]
     Dosage: 4.6 MG EVERY MORNING
     Route: 062
     Dates: start: 20081101
  2. COUMADIN [Suspect]
  3. ZOCOR [Suspect]

REACTIONS (2)
  - DISORIENTATION [None]
  - MEMORY IMPAIRMENT [None]
